FAERS Safety Report 13835241 (Version 1)
Quarter: 2017Q3

REPORT INFORMATION
  Report Type: Spontaneous
  Country: IN (occurrence: IN)
  Receive Date: 20170804
  Receipt Date: 20170804
  Transmission Date: 20171127
  Serious: Yes (Other)
  Sender: FDA-Public Use
  Company Number: IN-SUN PHARMACEUTICAL INDUSTRIES LTD-2017R1-146923

PATIENT
  Age: 25 Year
  Sex: Female

DRUGS (10)
  1. AMOXICILLIN CLAVULANATE [Suspect]
     Active Substance: AMOXICILLIN\CLAVULANIC ACID
     Indication: PANOPHTHALMITIS
  2. AMOXICILLIN CLAVULANATE [Suspect]
     Active Substance: AMOXICILLIN\CLAVULANIC ACID
     Indication: STAPHYLOCOCCAL INFECTION
  3. CEFAZOLIN [Suspect]
     Active Substance: CEFAZOLIN
     Indication: STAPHYLOCOCCAL INFECTION
  4. DEXAMETHASONE. [Suspect]
     Active Substance: DEXAMETHASONE
     Indication: IMMUNOSUPPRESSION
     Dosage: UNK
     Route: 065
  5. AMOXICILLIN CLAVULANATE [Suspect]
     Active Substance: AMOXICILLIN\CLAVULANIC ACID
     Indication: CELLULITIS ORBITAL
     Dosage: UNK
     Route: 042
  6. VANCOMYCIN [Suspect]
     Active Substance: VANCOMYCIN
     Indication: STAPHYLOCOCCAL INFECTION
  7. CEFAZOLIN [Suspect]
     Active Substance: CEFAZOLIN
     Indication: CELLULITIS ORBITAL
     Dosage: UNK
     Route: 042
  8. CEFAZOLIN [Suspect]
     Active Substance: CEFAZOLIN
     Indication: PANOPHTHALMITIS
  9. VANCOMYCIN [Suspect]
     Active Substance: VANCOMYCIN
     Indication: CELLULITIS ORBITAL
     Dosage: UNK
     Route: 042
  10. VANCOMYCIN [Suspect]
     Active Substance: VANCOMYCIN
     Indication: PANOPHTHALMITIS

REACTIONS (3)
  - Exposure during pregnancy [Recovered/Resolved]
  - Live birth [Unknown]
  - Drug ineffective [Unknown]
